FAERS Safety Report 7483032-9 (Version None)
Quarter: 2011Q2

REPORT INFORMATION
  Report Type: 
  Country: None (occurrence: None)
  Receive Date: 20110516
  Receipt Date: 20090306
  Transmission Date: 20111010
  Serious: Yes (Other)
  Sender: FDA-Public Use
  Company Number: US-BAYER-200914658NA

PATIENT
  Age: 62 Year
  Sex: Male
  Weight: 90.703 kg

DRUGS (17)
  1. MORPHINE [Concomitant]
     Dosage: 10 MG, UNK
  2. NITROGLYCERIN [Concomitant]
     Dosage: UNK
     Route: 042
     Dates: start: 20061101
  3. PROTAMINE SULFATE [Concomitant]
     Indication: CORONARY ARTERY BYPASS
  4. TRASYLOL [Suspect]
     Indication: ABDOMINAL HERNIA REPAIR
     Dosage: ANESTHESIA DOSE NOTES FULL LOADING DOSE GIVEN
     Dates: start: 20061101, end: 20061101
  5. TRASYLOL [Suspect]
     Indication: CORONARY ARTERY BYPASS
  6. LISINOPRIL [Concomitant]
     Dosage: 10 MG, UNK
     Route: 048
  7. ETOMIDATE [Concomitant]
     Dosage: UNK
     Route: 042
     Dates: start: 20061101
  8. VERSED [Concomitant]
     Dosage: 12 MG, UNK
     Route: 042
  9. ZETIA [Concomitant]
     Dosage: 10 MG
     Route: 048
     Dates: start: 20050506
  10. METOPROLOL SUCCINATE [Concomitant]
     Dosage: 50 MG, UNK
  11. MANNITOL [Concomitant]
     Dosage: 12.5
     Route: 042
     Dates: start: 20061101
  12. FENTANYL [Concomitant]
     Dosage: UNK
     Route: 042
     Dates: start: 20061101
  13. PROTAMINE SULFATE [Concomitant]
     Indication: ABDOMINAL HERNIA REPAIR
     Dosage: 350 MG, UNK
     Route: 042
  14. PRAVACHOL [Concomitant]
     Dosage: 40 MG, UNK
  15. LEVOPHED [Concomitant]
     Route: 042
  16. VANCOMYCIN [Concomitant]
     Dosage: 1 G, UNK
     Route: 042
  17. HEPARIN [Concomitant]
     Dosage: 30000 U, UNK
     Route: 042
     Dates: start: 20061101

REACTIONS (11)
  - ANXIETY [None]
  - PAIN [None]
  - MULTI-ORGAN FAILURE [None]
  - STRESS [None]
  - RENAL INJURY [None]
  - UNEVALUABLE EVENT [None]
  - RENAL FAILURE [None]
  - RENAL IMPAIRMENT [None]
  - EMOTIONAL DISTRESS [None]
  - FEAR [None]
  - INJURY [None]
